FAERS Safety Report 10163079 (Version 1)
Quarter: 2014Q2

REPORT INFORMATION
  Report Type: Spontaneous
  Country: NO (occurrence: NO)
  Receive Date: 20140509
  Receipt Date: 20140509
  Transmission Date: 20141212
  Serious: Yes (Hospitalization)
  Sender: FDA-Public Use
  Company Number: NO-ASTRAZENECA-2014SE30150

PATIENT
  Age: 65 Year
  Sex: Female

DRUGS (13)
  1. BRILIQUE [Suspect]
     Indication: ANGINA UNSTABLE
     Route: 048
     Dates: start: 20140213, end: 20140218
  2. ALBYL-E [Suspect]
     Indication: PROPHYLAXIS
     Route: 048
  3. FRAGMIN [Suspect]
     Indication: ANGINA UNSTABLE
     Route: 058
     Dates: start: 20140213, end: 20140218
  4. NOVORAPID [Concomitant]
     Route: 058
  5. LIPITOR [Concomitant]
     Route: 048
  6. FLUOXETINE [Concomitant]
     Route: 048
  7. NOBLIGAN [Concomitant]
     Route: 048
  8. LORATADINE [Concomitant]
     Route: 048
  9. NEXIUM [Concomitant]
     Route: 048
  10. MODURETIC MITE [Concomitant]
     Route: 048
  11. TRAMAGETIC OD [Concomitant]
     Route: 048
  12. NEURONTIN [Concomitant]
     Route: 048
  13. INSULATARD FLEXPEN [Concomitant]
     Dosage: 22 + 30 IE DAILY
     Route: 058

REACTIONS (2)
  - Quadriplegia [Not Recovered/Not Resolved]
  - Extradural haematoma [Not Recovered/Not Resolved]
